FAERS Safety Report 9684518 (Version 1)
Quarter: 2013Q4

REPORT INFORMATION
  Report Type: Spontaneous
  Country: US (occurrence: US)
  Receive Date: 20131112
  Receipt Date: 20131112
  Transmission Date: 20140711
  Serious: Yes (Hospitalization)
  Sender: FDA-Public Use
  Company Number: US-PURDUE-USA-2013-0108375

PATIENT
  Sex: Female

DRUGS (3)
  1. OXYCODONE HYDROCHLORIDE (SIMILAR TO NDA 22-272) [Suspect]
     Indication: PAIN
     Dosage: UNKNOWN
  2. FENTANYL [Suspect]
     Indication: PAIN
     Dosage: UNKNOWN
  3. XANAX [Suspect]
     Indication: PAIN
     Dosage: UNKNOWN

REACTIONS (6)
  - Limb crushing injury [Unknown]
  - Rib fracture [Unknown]
  - Pelvic fracture [Unknown]
  - Pleural disorder [Unknown]
  - Road traffic accident [Unknown]
  - Loss of consciousness [Unknown]
